FAERS Safety Report 7344295-3 (Version None)
Quarter: 2011Q1

REPORT INFORMATION
  Report Type: 
  Country: None (occurrence: None)
  Receive Date: 20110310
  Receipt Date: 20101025
  Transmission Date: 20110831
  Serious: No
  Sender: FDA-Public Use
  Company Number: A0888589A

PATIENT
  Age: 63 Year
  Sex: Male

DRUGS (1)
  1. NICORETTE [Suspect]
     Dates: start: 20101025, end: 20101025

REACTIONS (3)
  - HEADACHE [None]
  - EXPIRED DRUG ADMINISTERED [None]
  - NAUSEA [None]
